FAERS Safety Report 14998328 (Version 1)
Quarter: 2018Q2

REPORT INFORMATION
  Report Type: Spontaneous
  Country: NL (occurrence: NL)
  Receive Date: 20180611
  Receipt Date: 20180611
  Transmission Date: 20180711
  Serious: Yes (Hospitalization)
  Sender: FDA-Public Use
  Company Number: NL-TEVA-2018-NL-905674

PATIENT
  Age: 56 Year
  Sex: Female
  Weight: 59 kg

DRUGS (1)
  1. ANASTROZOL TABLET 1MG TABLET, 1 MG (MILLIGRAM) [Suspect]
     Active Substance: ANASTROZOLE
     Indication: BREAST CANCER
     Route: 065
     Dates: start: 20180313, end: 20180418

REACTIONS (5)
  - Tinnitus [Not Recovered/Not Resolved]
  - Balance disorder [Not Recovered/Not Resolved]
  - Nausea [Not Recovered/Not Resolved]
  - Headache [Not Recovered/Not Resolved]
  - Abdominal discomfort [Not Recovered/Not Resolved]

NARRATIVE: CASE EVENT DATE: 20180320
